FAERS Safety Report 9128988 (Version 1)
Quarter: 2013Q1

REPORT INFORMATION
  Report Type: Spontaneous
  Country: CA (occurrence: CA)
  Receive Date: 20130228
  Receipt Date: 20130228
  Transmission Date: 20140127
  Serious: Yes (Hospitalization)
  Sender: FDA-Public Use
  Company Number: CA-AMGEN-CANSP2013012514

PATIENT
  Age: 67 Year
  Sex: Female

DRUGS (5)
  1. XGEVA [Suspect]
     Indication: NEOPLASM MALIGNANT
     Dosage: UNK
     Dates: start: 20111129
  2. XARELTO [Concomitant]
  3. PLAVIX [Concomitant]
  4. LYRICA [Concomitant]
  5. CRESTOR [Concomitant]

REACTIONS (4)
  - Catheter site infection [Recovered/Resolved]
  - Dehydration [Recovered/Resolved]
  - Confusional state [Recovered/Resolved]
  - Gait disturbance [Recovered/Resolved]
